FAERS Safety Report 4867913-8 (Version None)
Quarter: 2005Q4

REPORT INFORMATION
  Report Type: 
  Country: None (occurrence: None)
  Receive Date: 20051223
  Receipt Date: 20051215
  Transmission Date: 20060501
  Serious: Yes (Hospitalization)
  Sender: FDA-Public Use
  Company Number: RS005678-J

PATIENT
  Age: 64 Year
  Sex: Male
  Weight: 47 kg

DRUGS (3)
  1. RABEPRAZOLE SODIUM [Suspect]
     Indication: REFLUX OESOPHAGITIS
     Dosage: 10 MG, 1 IN 1 D, ORAL
     Route: 048
     Dates: start: 20050818, end: 20051031
  2. ALEVIATIN (PHENYTOIN) [Suspect]
     Indication: CONVULSION
     Dosage: 300 MG, 3 IN 1 D, ORAL
     Route: 048
     Dates: start: 19981001, end: 20051031
  3. PHENOBAL (PHENOBARBITAL) [Concomitant]

REACTIONS (5)
  - ABASIA [None]
  - CEREBELLAR ATAXIA [None]
  - DYSSTASIA [None]
  - FALL [None]
  - SPEECH DISORDER [None]
